FAERS Safety Report 4889313-7 (Version None)
Quarter: 2006Q1

REPORT INFORMATION
  Report Type: 
  Country: None (occurrence: None)
  Receive Date: 20060124
  Receipt Date: 20060112
  Transmission Date: 20060701
  Serious: Yes (Other)
  Sender: FDA-Public Use
  Company Number: GB-BRISTOL-MYERS SQUIBB COMPANY-13245022

PATIENT
  Age: 64 Year
  Weight: 73 kg

DRUGS (7)
  1. PRAVASTATIN SODIUM [Suspect]
     Indication: ANGINA PECTORIS
     Route: 048
     Dates: start: 20051001, end: 20051101
  2. SOTALOL HCL [Concomitant]
     Route: 048
  3. ASPIRIN [Concomitant]
     Route: 048
  4. ISOSORBIDE MONONITRATE [Concomitant]
     Route: 048
  5. BENDROFLUMETHIAZIDE [Concomitant]
     Route: 048
  6. THYROXINE [Concomitant]
     Route: 048
  7. EZETIMIBE [Concomitant]
     Route: 048

REACTIONS (4)
  - BLOOD GLUCOSE DECREASED [None]
  - MALAISE [None]
  - NAUSEA [None]
  - VISUAL DISTURBANCE [None]
